FAERS Safety Report 7831177-3 (Version None)
Quarter: 2011Q4

REPORT INFORMATION
  Report Type: 
  Country: None (occurrence: None)
  Receive Date: 20111021
  Receipt Date: 20111010
  Transmission Date: 20120403
  Serious: Yes (Other)
  Sender: FDA-Public Use
  Company Number: GB-ROCHE-777475

PATIENT
  Sex: Female
  Weight: 73.8 kg

DRUGS (13)
  1. FLUOROURACIL [Concomitant]
     Indication: BREAST CANCER
     Route: 040
  2. HERCEPTIN [Suspect]
     Dosage: CYCLE 2 (6MG/KG)
     Route: 042
  3. HERCEPTIN [Suspect]
     Indication: BREAST CANCER
     Dosage: FIRST DOSE (CYCLE 1)
     Route: 042
  4. EPIRUBICIN [Concomitant]
     Indication: BREAST CANCER
     Route: 040
  5. FLUCONAZOLE [Concomitant]
     Indication: CANDIDIASIS
  6. PEGFILGRASTIM [Concomitant]
     Indication: PREMEDICATION
     Route: 065
  7. DOCETAXEL [Suspect]
     Indication: BREAST CANCER
     Route: 042
     Dates: start: 20110216, end: 20110216
  8. RATIOGRASTIM [Concomitant]
     Indication: PREMEDICATION
  9. CYCLOPHOSPHAMIDE [Concomitant]
     Indication: BREAST CANCER
     Route: 040
  10. DEXAMETHASONE [Concomitant]
     Indication: PREMEDICATION
  11. FLUCONAZOLE [Concomitant]
     Indication: PREMEDICATION
     Dosage: GIVEN WITH CYCLE 2
  12. DOCETAXEL [Suspect]
     Route: 042
     Dates: start: 20110309, end: 20110309
  13. DEXAMETHASONE [Concomitant]
     Dosage: MODIFIED DOSE PREMEDICATION (CYCLE 2)

REACTIONS (10)
  - NEUTROPENIC SEPSIS [None]
  - SWELLING FACE [None]
  - CANDIDIASIS [None]
  - OEDEMA PERIPHERAL [None]
  - RASH [None]
  - SKIN EXFOLIATION [None]
  - MYALGIA [None]
  - EYE DISCHARGE [None]
  - DRUG HYPERSENSITIVITY [None]
  - LACRIMATION INCREASED [None]
